FAERS Safety Report 6138216-9 (Version None)
Quarter: 2009Q1

REPORT INFORMATION
  Report Type: 
  Country: None (occurrence: None)
  Receive Date: 20090331
  Receipt Date: 20090324
  Transmission Date: 20090719
  Serious: Yes (Disabling)
  Sender: FDA-Public Use
  Company Number: A0774854A

PATIENT
  Age: 59 Year
  Sex: Male

DRUGS (2)
  1. LAMICTAL [Suspect]
     Indication: DRUG USE FOR UNKNOWN INDICATION
     Dosage: 25MG PER DAY
     Route: 048
     Dates: start: 20090319
  2. LUNESTA [Concomitant]

REACTIONS (5)
  - AGITATION [None]
  - PERFORMANCE STATUS DECREASED [None]
  - PRURITUS [None]
  - RASH [None]
  - TREMOR [None]
